FAERS Safety Report 5673197-3 (Version None)
Quarter: 2008Q1

REPORT INFORMATION
  Report Type: 
  Country: None (occurrence: None)
  Receive Date: 20080319
  Receipt Date: 20080318
  Transmission Date: 20080703
  Serious: Yes (Other)
  Sender: FDA-Public Use
  Company Number: US-BRISTOL-MYERS SQUIBB COMPANY-14119432

PATIENT

DRUGS (1)
  1. CYTOXAN [Suspect]

REACTIONS (1)
  - MYOCARDITIS [None]
